FAERS Safety Report 25895220 (Version 2)
Quarter: 2025Q4

REPORT INFORMATION
  Report Type: Spontaneous
  Country: US (occurrence: US)
  Receive Date: 20251008
  Receipt Date: 20251014
  Transmission Date: 20260117
  Serious: No
  Sender: ABBVIE
  Company Number: US-ABBVIE-6485489

PATIENT

DRUGS (1)
  1. LINACLOTIDE [Suspect]
     Active Substance: LINACLOTIDE
     Indication: Product used for unknown indication
     Dosage: FORM STRENGTH: 72 MICROGRAM
     Route: 048

REACTIONS (1)
  - Product dispensing error [Recovered/Resolved]

NARRATIVE: CASE EVENT DATE: 20250929
